FAERS Safety Report 22594490 (Version 2)
Quarter: 2025Q3

REPORT INFORMATION
  Report Type: Spontaneous
  Country: US (occurrence: US)
  Receive Date: 20230613
  Receipt Date: 20250902
  Transmission Date: 20251020
  Serious: No
  Sender: SANOFI AVENTIS
  Company Number: US-SA-SAC20230613000215

PATIENT
  Sex: Female
  Weight: 56 kg

DRUGS (12)
  1. DUPIXENT [Suspect]
     Active Substance: DUPILUMAB
     Indication: Dermatitis atopic
     Dosage: 300 MG, QOW
     Route: 058
  2. DUPIXENT [Suspect]
     Active Substance: DUPILUMAB
     Indication: Dermatitis atopic
     Dosage: 300 MG, QOW
     Route: 058
  3. ALBUTEROL SULFATE [Concomitant]
     Active Substance: ALBUTEROL SULFATE
  4. SEROQUEL [Concomitant]
     Active Substance: QUETIAPINE FUMARATE
  5. TRILEPTAL [Concomitant]
     Active Substance: OXCARBAZEPINE
  6. HYDROXYZINE HYDROCHLORIDE [Concomitant]
     Active Substance: HYDROXYZINE HYDROCHLORIDE
  7. MIRTAZAPINE [Concomitant]
     Active Substance: MIRTAZAPINE
  8. BUPROPION [Concomitant]
     Active Substance: BUPROPION
  9. LORAZEPAM [Concomitant]
     Active Substance: LORAZEPAM
  10. OLANZAPINE [Concomitant]
     Active Substance: OLANZAPINE
  11. METRONIDAZOLE [Concomitant]
     Active Substance: METRONIDAZOLE
  12. TRILEPTAL [Concomitant]
     Active Substance: OXCARBAZEPINE

REACTIONS (2)
  - Staphylococcal skin infection [Unknown]
  - Therapeutic response decreased [Unknown]
